FAERS Safety Report 14103434 (Version 3)
Quarter: 2017Q4

REPORT INFORMATION
  Report Type: Report from Study
  Country: US (occurrence: US)
  Receive Date: 20171018
  Receipt Date: 20171121
  Transmission Date: 20180321
  Serious: Yes (Other)
  Sender: FDA-Public Use
  Company Number: US-JNJFOC-20170923729

PATIENT
  Age: 64 Year
  Sex: Male

DRUGS (10)
  1. TAMSULOSIN HCL [Concomitant]
     Active Substance: TAMSULOSIN
  2. IMBRUVICA [Suspect]
     Active Substance: IBRUTINIB
     Indication: WALDENSTROM^S MACROGLOBULINAEMIA
     Route: 048
     Dates: start: 20170823
  3. BUSPAR [Concomitant]
     Active Substance: BUSPIRONE HYDROCHLORIDE
  4. ARICEPT [Concomitant]
     Active Substance: DONEPEZIL HYDROCHLORIDE
  5. ARMODAFINIL. [Concomitant]
     Active Substance: ARMODAFINIL
  6. MUCINEX [Concomitant]
     Active Substance: GUAIFENESIN
  7. IMBRUVICA [Suspect]
     Active Substance: IBRUTINIB
     Indication: WALDENSTROM^S MACROGLOBULINAEMIA
     Route: 048
     Dates: start: 20160801
  8. LAMICTAL [Concomitant]
     Active Substance: LAMOTRIGINE
  9. PERCOCET [Concomitant]
     Active Substance: ACETAMINOPHEN\OXYCODONE HYDROCHLORIDE
  10. ZOLOFT [Concomitant]
     Active Substance: SERTRALINE HYDROCHLORIDE

REACTIONS (6)
  - Haemoglobin decreased [Recovering/Resolving]
  - Asthenia [Unknown]
  - Bronchitis [Unknown]
  - Seasonal allergy [Unknown]
  - Sinusitis [Unknown]
  - Lung infection [Unknown]

NARRATIVE: CASE EVENT DATE: 201710
